FAERS Safety Report 17605352 (Version 1)
Quarter: 2020Q1

REPORT INFORMATION
  Report Type: Spontaneous
  Country: RO (occurrence: RO)
  Receive Date: 20200331
  Receipt Date: 20200331
  Transmission Date: 20200409
  Serious: Yes (Other)
  Sender: FDA-Public Use
  Company Number: RO-SA-2020SA077453

PATIENT
  Age: 64 Year
  Sex: Female
  Weight: 90 kg

DRUGS (2)
  1. LEFLUNOMIDE. [Suspect]
     Active Substance: LEFLUNOMIDE
     Dosage: 20 MG, QD
     Route: 048
     Dates: start: 20130401
  2. MABTHERA [Suspect]
     Active Substance: RITUXIMAB
     Dosage: 1000 MG(EVERY 14 DAYS)
     Route: 042
     Dates: start: 20190810

REACTIONS (1)
  - Neutrophilic dermatosis [Recovered/Resolved]

NARRATIVE: CASE EVENT DATE: 20191015
